FAERS Safety Report 6198294-8 (Version None)
Quarter: 2009Q2

REPORT INFORMATION
  Report Type: 
  Country: None (occurrence: None)
  Receive Date: 20090519
  Receipt Date: 20090513
  Transmission Date: 20091009
  Serious: Yes (Other)
  Sender: FDA-Public Use
  Company Number: SPV1-2009-00951

PATIENT
  Sex: Female

DRUGS (1)
  1. VYVANSE [Suspect]
     Dosage: 40 MG, 1X/DAY; QD; ORAL
     Route: 048
     Dates: start: 20090512

REACTIONS (2)
  - APHASIA [None]
  - CATATONIA [None]
